FAERS Safety Report 25923414 (Version 1)
Quarter: 2025Q4

REPORT INFORMATION
  Report Type: Other
  Country: SG (occurrence: SG)
  Receive Date: 20251015
  Receipt Date: 20251015
  Transmission Date: 20260117
  Serious: Yes (Death, Life-Threatening, Hospitalization)
  Sender: ANI
  Company Number: SG-ANIPHARMA-030878

PATIENT
  Age: 58 Year
  Sex: Female

DRUGS (3)
  1. SULFAMETHOXAZOLE\TRIMETHOPRIM [Suspect]
     Active Substance: SULFAMETHOXAZOLE\TRIMETHOPRIM
     Indication: Disseminated toxoplasmosis
  2. PYRIMETHAMINE [Concomitant]
     Active Substance: PYRIMETHAMINE
     Indication: Disseminated toxoplasmosis
  3. SULFADIAZINE [Concomitant]
     Active Substance: SULFADIAZINE
     Indication: Disseminated toxoplasmosis

REACTIONS (1)
  - Drug ineffective [Fatal]
